FAERS Safety Report 10643258 (Version 1)
Quarter: 2014Q4

REPORT INFORMATION
  Report Type: Spontaneous
  Country: US (occurrence: None)
  Receive Date: 20141121
  Receipt Date: 20141121
  Transmission Date: 20150529
  Serious: No
  Sender: FDA-Public Use
  Company Number: 163-10004-14074685

PATIENT
  Age: 47 Year
  Sex: Male
  Weight: 151.05 kg

DRUGS (3)
  1. OTEZLA [Suspect]
     Active Substance: APREMILAST
     Indication: PSORIATIC ARTHROPATHY
     Route: 048
     Dates: start: 20140609
  2. POMALYST [Concomitant]
     Active Substance: POMALIDOMIDE
  3. ZOLOFT [Concomitant]
     Active Substance: SERTRALINE HYDROCHLORIDE

REACTIONS (13)
  - Eyeglasses therapy [None]
  - Depression [None]
  - Nausea [None]
  - Anxiety [None]
  - Psoriatic arthropathy [None]
  - Diarrhoea [None]
  - Headache [None]
  - Muscle spasms [None]
  - Glycosylated haemoglobin increased [None]
  - Mood altered [None]
  - Pollakiuria [None]
  - Insomnia [None]
  - Frequent bowel movements [None]

NARRATIVE: CASE EVENT DATE: 2014
